FAERS Safety Report 5382944-X (Version None)
Quarter: 2007Q3

REPORT INFORMATION
  Report Type: 
  Country: None (occurrence: None)
  Receive Date: 20070710
  Receipt Date: 20070622
  Transmission Date: 20080115
  Serious: Yes (Other)
  Sender: FDA-Public Use
  Company Number: US-GENENTECH-243454

PATIENT
  Age: 62 Year
  Sex: Male

DRUGS (2)
  1. RITUXAN [Suspect]
     Indication: MANTLE CELL LYMPHOMA
     Dosage: 375 MG/M2, UNK
     Dates: start: 20020101, end: 20060201
  2. CHEMOTHERAPY (UNK INGREDIENTS) [Concomitant]
     Indication: MANTLE CELL LYMPHOMA
     Dates: start: 20020101

REACTIONS (2)
  - EOSINOPHILIA [None]
  - OBLITERATIVE BRONCHIOLITIS [None]
